FAERS Safety Report 25549420 (Version 1)
Quarter: 2025Q3

REPORT INFORMATION
  Report Type: Spontaneous
  Country: US (occurrence: US)
  Receive Date: 20250714
  Receipt Date: 20250714
  Transmission Date: 20251020
  Serious: Yes (Other)
  Sender: ELI LILLY AND COMPANY
  Company Number: US-ELI_LILLY_AND_COMPANY-US202507003520

PATIENT
  Age: 70 Year
  Sex: Female

DRUGS (1)
  1. FORTEO [Suspect]
     Active Substance: TERIPARATIDE
     Indication: Product used for unknown indication
     Route: 065
     Dates: start: 202506

REACTIONS (10)
  - Loss of consciousness [Unknown]
  - Head injury [Unknown]
  - Brain fog [Unknown]
  - Feeling abnormal [Unknown]
  - Malaise [Unknown]
  - Dehydration [Unknown]
  - Blood electrolytes increased [Recovered/Resolved]
  - Dizziness [Unknown]
  - Constipation [Unknown]
  - Nausea [Unknown]

NARRATIVE: CASE EVENT DATE: 20250701
